FAERS Safety Report 5119912-9 (Version None)
Quarter: 2006Q3

REPORT INFORMATION
  Report Type: 
  Country: None (occurrence: None)
  Receive Date: 20060929
  Receipt Date: 20060912
  Transmission Date: 20061208
  Serious: Yes (Hospitalization, Other)
  Sender: FDA-Public Use
  Company Number: ENT 2006-0127

PATIENT
  Age: 81 Year
  Sex: Female

DRUGS (12)
  1. COMTAN [Suspect]
     Indication: PARKINSON'S DISEASE
     Dosage: 400 MG ORAL
     Route: 048
  2. DOLIPRANE [Concomitant]
  3. PRAZEPAM [Concomitant]
  4. STABLON [Concomitant]
  5. ANAFRANIL [Concomitant]
  6. DITROPAN [Concomitant]
  7. XANAX [Concomitant]
  8. VASTAREL [Concomitant]
  9. SEGLOR [Concomitant]
  10. PARIET [Concomitant]
  11. DAFALGAN [Concomitant]
  12. MADOPAR [Suspect]
     Indication: PARKINSON'S DISEASE
     Dosage: 150/600 MG
     Route: 048

REACTIONS (7)
  - BLOOD PRESSURE SYSTOLIC INCREASED [None]
  - CONFUSIONAL STATE [None]
  - CREATININE RENAL CLEARANCE DECREASED [None]
  - EXTRAPYRAMIDAL DISORDER [None]
  - FALL [None]
  - HYPERTONIA [None]
  - PYREXIA [None]
